FAERS Safety Report 10189526 (Version 2)
Quarter: 2014Q2

REPORT INFORMATION
  Report Type: Spontaneous
  Country: CA (occurrence: CA)
  Receive Date: 20140522
  Receipt Date: 20140522
  Transmission Date: 20141212
  Serious: Yes (Death)
  Sender: FDA-Public Use
  Company Number: CA-CELGENEUS-028-21880-13111267

PATIENT
  Age: 45 Year
  Sex: Male

DRUGS (7)
  1. REVLIMID [Suspect]
     Indication: PLASMA CELL MYELOMA
     Route: 048
     Dates: start: 201108
  2. REVLIMID [Suspect]
     Dosage: 25 MILLICURIES
     Route: 048
     Dates: start: 20120508
  3. POMALYST [Suspect]
     Indication: PLASMA CELL MYELOMA
     Dosage: 2 MILLIGRAM
     Route: 048
     Dates: start: 20131112
  4. POMALYST [Suspect]
     Dosage: 4 MILLIGRAM
     Route: 048
     Dates: start: 20140312
  5. DEXAMETHASONE [Concomitant]
     Indication: PLASMA CELL MYELOMA
     Route: 065
     Dates: start: 201007
  6. DEXAMETHASONE [Concomitant]
     Route: 065
     Dates: start: 201108
  7. DEXAMETHASONE [Concomitant]
     Route: 065
     Dates: start: 201212

REACTIONS (3)
  - Death [Fatal]
  - Plasma cell myeloma [Unknown]
  - Treatment failure [Unknown]
